FAERS Safety Report 19037146 (Version 1)
Quarter: 2021Q1

REPORT INFORMATION
  Report Type: Spontaneous
  Country: US (occurrence: US)
  Receive Date: 20210322
  Receipt Date: 20210322
  Transmission Date: 20210420
  Serious: No
  Sender: FDA-Public Use
  Company Number: US-BEH-2021129479

PATIENT
  Age: 66 Year
  Sex: Female
  Weight: 65.31 kg

DRUGS (2)
  1. HIZENTRA [Suspect]
     Active Substance: HUMAN IMMUNOGLOBULIN G
     Indication: POLYNEUROPATHY
     Dosage: 300 MILLIGRAM/KILOGRAM, QW
     Route: 058
     Dates: start: 20200916
  2. HIZENTRA [Suspect]
     Active Substance: HUMAN IMMUNOGLOBULIN G
     Dosage: UNK
     Route: 058

REACTIONS (4)
  - Liquid product physical issue [Unknown]
  - No adverse event [Unknown]
  - Off label use [Unknown]
  - Incorrect dose administered [Unknown]
